FAERS Safety Report 14996364 (Version 3)
Quarter: 2018Q2

REPORT INFORMATION
  Report Type: Spontaneous
  Country: JP (occurrence: JP)
  Receive Date: 20180611
  Receipt Date: 20180628
  Transmission Date: 20180711
  Serious: Yes (Death)
  Sender: FDA-Public Use
  Company Number: JP-BAYER-2018-106515

PATIENT
  Age: 75 Year
  Sex: Male

DRUGS (2)
  1. NEXAVAR [Suspect]
     Active Substance: SORAFENIB
     Indication: HEPATOCELLULAR CARCINOMA
     Dosage: DAILY DOSE 800 MG
     Route: 048
  2. STIVARGA [Suspect]
     Active Substance: REGORAFENIB
     Indication: HEPATOCELLULAR CARCINOMA

REACTIONS (5)
  - Hepatocellular carcinoma [Fatal]
  - Decreased appetite [Unknown]
  - Alopecia [Unknown]
  - Dysgeusia [Unknown]
  - Palmar-plantar erythrodysaesthesia syndrome [Unknown]
